FAERS Safety Report 24198596 (Version 1)
Quarter: 2024Q3

REPORT INFORMATION
  Report Type: Spontaneous
  Country: TR (occurrence: TR)
  Receive Date: 20240812
  Receipt Date: 20240812
  Transmission Date: 20241017
  Serious: Yes (Other)
  Sender: NOVO NORDISK
  Company Number: TR-NOVOPROD-1266837

PATIENT
  Sex: Male

DRUGS (12)
  1. VASTAREL [Concomitant]
     Active Substance: TRIMETAZIDINE DIHYDROCHLORIDE
     Dosage: 80 MG
  2. RYZODEG 70/30 [Suspect]
     Active Substance: INSULIN ASPART\INSULIN DEGLUDEC
     Indication: Product used for unknown indication
     Dosage: UNK
  3. PLAVIX [Concomitant]
     Active Substance: CLOPIDOGREL BISULFATE
     Indication: Cardiac disorder
     Dosage: 75 MG, QD
  4. SYMBICORT [Concomitant]
     Active Substance: BUDESONIDE\FORMOTEROL FUMARATE DIHYDRATE
     Dosage: UNK (2*1)
  5. DILTIZEM [Concomitant]
     Indication: Cardiac disorder
     Dosage: 60 MG (2*1)
  6. BETAHISTINE [Concomitant]
     Active Substance: BETAHISTINE
     Indication: Dizziness
     Dosage: 24 MG (2*1)
  7. RANEX [Concomitant]
     Indication: Prophylaxis
     Dosage: 20 MG, QD
  8. BENEDAY [Concomitant]
     Indication: Vitamin B complex deficiency
     Dosage: UNK (1*1)
  9. DAPAGLIFLOZIN [Concomitant]
     Active Substance: DAPAGLIFLOZIN
     Indication: Type 1 diabetes mellitus
     Dosage: 10 MG, QD
  10. ALFUZOSIN [Concomitant]
     Active Substance: ALFUZOSIN
     Indication: Prostatic disorder
     Dosage: 10 MG, QD
  11. DESAL [DESLORATADINE] [Concomitant]
     Indication: Oedema
     Dosage: 40 MG, QD
  12. ASPIRIN [Concomitant]
     Active Substance: ASPIRIN
     Indication: Anticoagulant therapy
     Dosage: 100 MG, QD

REACTIONS (2)
  - Cerebral artery embolism [Unknown]
  - Hemiplegia [Unknown]
